FAERS Safety Report 4372392-3 (Version None)
Quarter: 2004Q2

REPORT INFORMATION
  Report Type: 
  Country: None (occurrence: None)
  Receive Date: 20040526
  Receipt Date: 20040517
  Transmission Date: 20050107
  Serious: Yes (Hospitalization, Disabling, Other)
  Sender: FDA-Public Use
  Company Number: A-CH2004-05182

PATIENT
  Age: 72 Year
  Sex: Male

DRUGS (10)
  1. TRACLEER [Suspect]
     Indication: PULMONARY HYPERTENSION
     Dosage: 62.5 + 125 MG, BID, ORAL
     Route: 048
     Dates: start: 20030425, end: 20030701
  2. TRACLEER [Suspect]
     Indication: PULMONARY HYPERTENSION
     Dosage: 62.5 + 125 MG, BID, ORAL
     Route: 048
     Dates: start: 20030701, end: 20040216
  3. TRACLEER [Suspect]
     Indication: PULMONARY HYPERTENSION
     Dosage: 62.5 + 125 MG, BID, ORAL
     Route: 048
     Dates: start: 20040221
  4. PREDNISONE TAB [Concomitant]
  5. TRILEPTAL [Concomitant]
  6. HYDROCORTISONE [Concomitant]
  7. VASTAREL ^BIOPHARMA^ (TRIMETAZIDINE HYDROCHLORIDE) [Concomitant]
  8. OMEPRAZOLE [Concomitant]
  9. PREVISCAN (FLUINDIONE) [Concomitant]
  10. DILTIAZEM HYDROCHLORIDE [Concomitant]

REACTIONS (7)
  - ASTHENIA [None]
  - CUTANEOUS VASCULITIS [None]
  - LIVEDO RETICULARIS [None]
  - NEURALGIA [None]
  - OEDEMA PERIPHERAL [None]
  - RAYNAUD'S PHENOMENON [None]
  - SKIN ULCER [None]
